FAERS Safety Report 8034471-9 (Version None)
Quarter: 2012Q1

REPORT INFORMATION
  Report Type: 
  Country: None (occurrence: None)
  Receive Date: 20120110
  Receipt Date: 20120103
  Transmission Date: 20120608
  Serious: Yes (Hospitalization)
  Sender: FDA-Public Use
  Company Number: US-US-EMD SERONO, INC.-7071186

PATIENT
  Sex: Male

DRUGS (11)
  1. LORAZEPAM [Concomitant]
  2. ABILIFY [Concomitant]
  3. FLOMAX [Concomitant]
  4. PREVACID [Concomitant]
  5. IRON SUPPLEMENT [Concomitant]
  6. SEROQUEL [Concomitant]
  7. REBIF [Suspect]
     Indication: MULTIPLE SCLEROSIS
     Route: 058
     Dates: start: 20040915
  8. LIPITOR [Concomitant]
  9. BACLOFEN [Concomitant]
  10. CYCLOBENZAPRINE HCL [Concomitant]
  11. LEXAPRO [Concomitant]

REACTIONS (4)
  - PNEUMONIA [None]
  - URINARY TRACT INFECTION [None]
  - MULTIPLE SCLEROSIS RELAPSE [None]
  - BLOOD SODIUM DECREASED [None]
